FAERS Safety Report 8168480-6 (Version None)
Quarter: 2012Q1

REPORT INFORMATION
  Report Type: 
  Country: None (occurrence: None)
  Receive Date: 20120227
  Receipt Date: 20120227
  Transmission Date: 20120608
  Serious: Yes (Life-Threatening)
  Sender: FDA-Public Use
  Company Number: None

PATIENT
  Age: 64 Year
  Sex: Male
  Weight: 86.636 kg

DRUGS (1)
  1. CETUXIMAB [Suspect]
     Dosage: 525 MG
     Route: 042
     Dates: start: 20120218, end: 20120218

REACTIONS (12)
  - DYSPNOEA [None]
  - HYPERHIDROSIS [None]
  - UNRESPONSIVE TO STIMULI [None]
  - BLOOD PRESSURE IMMEASURABLE [None]
  - HEART RATE ABNORMAL [None]
  - CARDIO-RESPIRATORY ARREST [None]
  - PALLOR [None]
  - EYE MOVEMENT DISORDER [None]
  - RESPIRATORY RATE INCREASED [None]
  - PERICARDIAL RUB [None]
  - MYDRIASIS [None]
  - FLUSHING [None]
